FAERS Safety Report 11913063 (Version 7)
Quarter: 2019Q3

REPORT INFORMATION
  Report Type: Report from Study
  Country: BE (occurrence: BE)
  Receive Date: 20160113
  Receipt Date: 20190802
  Transmission Date: 20191004
  Serious: Yes (Other)
  Sender: FDA-Public Use
  Company Number: PHHY2016BE001886

PATIENT
  Age: 43 Year
  Sex: Female

DRUGS (23)
  1. BAKLOFEN MYLAN [Concomitant]
     Active Substance: BACLOFEN
     Indication: PRODUCT USED FOR UNKNOWN INDICATION
     Dosage: 1 DF, AT 8 AM
     Route: 048
  2. MOXONIDINE EG [Concomitant]
     Indication: PRODUCT USED FOR UNKNOWN INDICATION
     Dosage: 1 DF, AT 8 AM
     Route: 048
  3. NEURONTIN [Concomitant]
     Active Substance: GABAPENTIN
     Indication: PRODUCT USED FOR UNKNOWN INDICATION
     Dosage: (4 DF, QD (1 IN MORNING 8 AM, AT NOON 12 PM, IN AFTERNOON 4 PM AND EVENING 8 PM)
     Route: 048
  4. GILENYA [Suspect]
     Active Substance: FINGOLIMOD HYDROCHLORIDE
     Dosage: UNK, QD
     Route: 048
     Dates: start: 20171019, end: 20180228
  5. DAFALGAN [Concomitant]
     Active Substance: ACETAMINOPHEN
     Indication: PAIN
     Dosage: WHEN HAVING PAIN 2 DF (IN MORNING 8 AM, EVENING 8 PM), DOSAGE PER DOSE: 1 DF
     Route: 048
  6. LACTULOSE. [Concomitant]
     Active Substance: LACTULOSE
     Indication: PRODUCT USED FOR UNKNOWN INDICATION
     Dosage: 1 X 30 ML-WHEN CONSTIPATION
     Route: 048
  7. TOVIAZ [Concomitant]
     Active Substance: FESOTERODINE FUMARATE
     Indication: PRODUCT USED FOR UNKNOWN INDICATION
     Dosage: 1 DF, AT 8 PM
     Route: 048
  8. ADVANTAN [Concomitant]
     Active Substance: METHYLPREDNISOLONE ACEPONATE
     Indication: PRODUCT USED FOR UNKNOWN INDICATION
     Dosage: LOCALLY ON SKIN AT 8:20 AM
     Route: 065
  9. JANUMET [Concomitant]
     Active Substance: METFORMIN HYDROCHLORIDE\SITAGLIPTIN PHOSPHATE
     Indication: PRODUCT USED FOR UNKNOWN INDICATION
     Dosage: 1 DF,  AT 8 AM
     Route: 048
  10. DIASEPTYL [Concomitant]
     Active Substance: CHLORHEXIDINE
     Indication: PRODUCT USED FOR UNKNOWN INDICATION
     Dosage: LOCALLY ON SKIN AT 8.20 AM
     Route: 065
  11. LIOSANNE [Concomitant]
     Active Substance: ETHINYL ESTRADIOL\GESTODENE
     Indication: PRODUCT USED FOR UNKNOWN INDICATION
     Dosage: 1 DF,  AT 8 PM
     Route: 048
  12. PANTOMED//PANTOPRAZOLE SODIUM SESQUIHYDRATE [Concomitant]
     Indication: PRODUCT USED FOR UNKNOWN INDICATION
     Dosage: 20 MG, QD (IN MORNING 8 AM)
     Route: 048
  13. BACLOFEN. [Concomitant]
     Active Substance: BACLOFEN
     Indication: PRODUCT USED FOR UNKNOWN INDICATION
     Dosage: 10 MG, (1, 5 TABLET IN MORNING 8 AM)
     Route: 048
  14. BRUFEN//IBUPROFEN [Concomitant]
     Active Substance: IBUPROFEN
     Indication: PAIN
     Dosage: WHEN HAVING PAIN MAX: 2, QD, DOSAGE PER DOSE:
     Route: 065
  15. GILENYA [Suspect]
     Active Substance: FINGOLIMOD HYDROCHLORIDE
     Indication: MULTIPLE SCLEROSIS
     Dosage: UNK, QD
     Route: 048
     Dates: start: 20140310, end: 20171018
  16. ALDACTAZINE [Concomitant]
     Active Substance: ALTHIAZIDE\SPIRONOLACTONE
     Indication: PRODUCT USED FOR UNKNOWN INDICATION
     Dosage: 1 DF, AT 8 AM
     Route: 048
  17. COVERAM [Concomitant]
     Active Substance: AMLODIPINE\PERINDOPRIL
     Indication: PRODUCT USED FOR UNKNOWN INDICATION
     Dosage: 1 DF, AT  8 AM HR
     Route: 048
  18. MICROLAX                                /DEN/ [Concomitant]
     Indication: CONSTIPATION
     Dosage: MAX. 1 PER DAY, IF NEEDED 1 ENEMA IN THE MORNING (8 AM)
     Route: 054
  19. SATIVEX [Concomitant]
     Active Substance: NABIXIMOLS
     Dosage: 2, 5 MG (1 PRESS)
     Route: 048
  20. LACRYSTAT [Concomitant]
     Indication: PRODUCT USED FOR UNKNOWN INDICATION
     Dosage: LOCALLY IN BOTH EYES-2 TO 3 TIMES A DAY
     Route: 031
  21. LORAMET [Concomitant]
     Active Substance: LORMETAZEPAM
     Indication: PRODUCT USED FOR UNKNOWN INDICATION
     Dosage: ? TABLET OF 20 MG-AT 8 PM
     Route: 048
  22. SATIVEX [Concomitant]
     Active Substance: NABIXIMOLS
     Indication: PRODUCT USED FOR UNKNOWN INDICATION
     Dosage: 2, 7 MG (1 PRESS)
     Route: 048
  23. SATIVEX [Concomitant]
     Active Substance: NABIXIMOLS
     Dosage: 5, 5 ML (1 PRESS)
     Route: 048

REACTIONS (9)
  - Supraventricular extrasystoles [Not Recovered/Not Resolved]
  - Palpitations [Recovered/Resolved]
  - Hepatitis E [Recovered/Resolved]
  - Ventricular extrasystoles [Not Recovered/Not Resolved]
  - Influenza [Unknown]
  - Lymphocyte count decreased [Recovered/Resolved]
  - Cough [Unknown]
  - Gamma-glutamyltransferase increased [Not Recovered/Not Resolved]
  - Pneumonia [Unknown]

NARRATIVE: CASE EVENT DATE: 20150101
